FAERS Safety Report 8078823-X (Version None)
Quarter: 2012Q1

REPORT INFORMATION
  Report Type: 
  Country: None (occurrence: None)
  Receive Date: 20120124
  Receipt Date: 20120112
  Transmission Date: 20120608
  Serious: Yes (Hospitalization, Disabling)
  Sender: FDA-Public Use
  Company Number: WAES 1201USA02789

PATIENT
  Age: 72 Year
  Sex: Male

DRUGS (11)
  1. ISOSORBIDE MONONITRATE [Suspect]
     Dosage: 20 MG/BID PO
     Route: 048
     Dates: start: 20111003, end: 20111017
  2. PEPCID [Suspect]
     Dosage: 20 MG/BID PO
     Route: 048
     Dates: start: 20111006, end: 20111017
  3. METFORMIN HYDROCHLORIDE [Suspect]
     Dosage: 250 MG/TID/PO
     Route: 048
     Dates: start: 20111005, end: 20111017
  4. METOPROLOL TARTRATE [Suspect]
     Dosage: 150 MG/BID/PO
     Route: 048
     Dates: start: 20111006, end: 20111017
  5. VASOTEC [Suspect]
     Dosage: 10 MG/BID PO
     Route: 048
     Dates: start: 20111006, end: 20111017
  6. ASPIRIN [Suspect]
     Dosage: 80 MG/DAILY PO
     Route: 048
     Dates: start: 20111006, end: 20111017
  7. NITROGLYCERIN [Suspect]
     Dosage: 500 MICROGM SL
     Route: 060
     Dates: start: 20111003, end: 20111017
  8. ASPIRIN [Suspect]
     Dosage: 80 MG/WKY PO
     Route: 048
     Dates: start: 20111021, end: 20111025
  9. ZOCOR [Suspect]
     Indication: PRODUCT USED FOR UNKNOWN INDICATION
     Dosage: 10MG/PM PO,
     Route: 048
     Dates: start: 20111006, end: 20111017
  10. METOPROLOL TARTRATE [Suspect]
     Dosage: 150 MG/BID/PO
     Route: 048
     Dates: start: 20111021, end: 20111025
  11. PLACEBO [Suspect]
     Indication: TYPE 2 DIABETES MELLITUS
     Dosage: PO
     Route: 048

REACTIONS (1)
  - CERVICAL CORD COMPRESSION [None]
